FAERS Safety Report 10215191 (Version 2)
Quarter: 2014Q2

REPORT INFORMATION
  Report Type: Spontaneous
  Country: US (occurrence: US)
  Receive Date: 20140603
  Receipt Date: 20140625
  Transmission Date: 20141212
  Serious: Yes (Other)
  Sender: FDA-Public Use
  Company Number: CHPA2014US007553

PATIENT
  Age: 54 Year
  Sex: Female

DRUGS (2)
  1. VOLTAREN GEL [Suspect]
     Indication: PAIN
     Dosage: 4 G, QID
     Route: 061
     Dates: start: 2011, end: 201403
  2. VOLTAREN GEL [Suspect]
     Indication: OFF LABEL USE

REACTIONS (3)
  - Rheumatoid arthritis [Not Recovered/Not Resolved]
  - Fibromyalgia [Not Recovered/Not Resolved]
  - Drug administered at inappropriate site [Unknown]
